FAERS Safety Report 5567493-8 (Version None)
Quarter: 2007Q4

REPORT INFORMATION
  Report Type: 
  Country: None (occurrence: None)
  Receive Date: 20071219
  Receipt Date: 20071212
  Transmission Date: 20080405
  Serious: Yes (Other)
  Sender: FDA-Public Use
  Company Number: GB-MERCK-0712GBR00028

PATIENT
  Age: 37 Year
  Sex: Male

DRUGS (2)
  1. ZOCOR [Suspect]
     Indication: BLOOD CHOLESTEROL INCREASED
     Route: 048
     Dates: start: 20070917
  2. CANDESARTAN [Concomitant]
     Indication: HYPERTENSION
     Route: 048
     Dates: start: 20070601

REACTIONS (3)
  - ALANINE AMINOTRANSFERASE INCREASED [None]
  - OEDEMA PERIPHERAL [None]
  - SWELLING FACE [None]
